FAERS Safety Report 9695416 (Version 1)
Quarter: 2013Q4

REPORT INFORMATION
  Report Type: Report from Study
  Country: US (occurrence: US)
  Receive Date: 20131119
  Receipt Date: 20131119
  Transmission Date: 20140711
  Serious: Yes (Hospitalization, Other)
  Sender: FDA-Public Use
  Company Number: US-CELGENEUS-163-C4047-13112524

PATIENT
  Sex: 0

DRUGS (4)
  1. CC-4047 [Suspect]
     Indication: PLASMA CELL MYELOMA
     Dosage: 4 MILLIGRAM
     Route: 048
  2. BORTEZOMIB [Suspect]
     Indication: PLASMA CELL MYELOMA
     Route: 041
  3. BORTEZOMIB [Suspect]
     Route: 041
  4. DEXAMETHASONE [Suspect]
     Indication: PLASMA CELL MYELOMA
     Dosage: 5.7143 MILLIGRAM
     Route: 048

REACTIONS (10)
  - Infection [Unknown]
  - Neutropenia [Unknown]
  - Lymphopenia [Unknown]
  - Leukopenia [Unknown]
  - Atrial flutter [Unknown]
  - Lung infection [Unknown]
  - Pancytopenia [Unknown]
  - Anaemia [Unknown]
  - Fatigue [Unknown]
  - Thrombocytopenia [Unknown]
